FAERS Safety Report 8441097 (Version 2)
Quarter: 2012Q4

REPORT INFORMATION
  Report Type: 
  Country: CH (occurrence: JP)
  Receive Date: 20120305
  Receipt Date: 20121112
  Transmission Date: 20130627
  Serious: No
  Sender: FDA-Public Use
  Company Number: JP-ROCHE-1045252

PATIENT
  Age: 80 Year
  Sex: Male

DRUGS (16)
  1. RANIBIZUMAB [Suspect]
     Indication: AGE-RELATED MACULAR DEGENERATION
     Route: 050
     Dates: start: 20100105
  2. RANIBIZUMAB [Suspect]
     Route: 050
     Dates: start: 20100203
  3. RANIBIZUMAB [Suspect]
     Route: 050
     Dates: start: 20100304
  4. RANIBIZUMAB [Suspect]
     Route: 050
     Dates: start: 20100527
  5. RANIBIZUMAB [Suspect]
     Route: 050
     Dates: start: 20100630
  6. RANIBIZUMAB [Suspect]
     Route: 050
     Dates: start: 20100728
  7. RANIBIZUMAB [Suspect]
     Route: 050
     Dates: start: 20101020
  8. VISUDYNE [Concomitant]
  9. BAYASPIRIN [Concomitant]
     Route: 065
     Dates: start: 200102
  10. GASTROM [Concomitant]
  11. LANIRAPID [Concomitant]
  12. WARFARIN [Concomitant]
     Route: 065
     Dates: start: 199903
  13. PARIET [Concomitant]
     Route: 065
     Dates: start: 200306
  14. THEOPHYLLINE [Concomitant]
  15. MUCODYNE [Concomitant]
  16. ASPARA K [Concomitant]
     Route: 065
     Dates: start: 2001

REACTIONS (1)
  - Pneumonia [Unknown]
